FAERS Safety Report 21285925 (Version 1)
Quarter: 2022Q3

REPORT INFORMATION
  Report Type: Spontaneous
  Country: HR (occurrence: HR)
  Receive Date: 20220902
  Receipt Date: 20220902
  Transmission Date: 20221026
  Serious: Yes (Other)
  Sender: FDA-Public Use
  Company Number: None

PATIENT
  Age: 51 Year
  Sex: Male
  Weight: 60 kg

DRUGS (1)
  1. DOCETAXEL [Suspect]
     Active Substance: DOCETAXEL
     Indication: Head and neck cancer
     Dates: start: 20220613, end: 20220613

REACTIONS (6)
  - Vertigo [Recovering/Resolving]
  - Eating disorder [Unknown]
  - Blood pressure decreased [Recovered/Resolved]
  - Weight decreased [Unknown]
  - Asthenia [Recovering/Resolving]
  - Dehydration [Unknown]

NARRATIVE: CASE EVENT DATE: 20220601
